FAERS Safety Report 15007719 (Version 1)
Quarter: 2018Q2

REPORT INFORMATION
  Report Type: Spontaneous
  Country: BR (occurrence: BR)
  Receive Date: 20180613
  Receipt Date: 20180613
  Transmission Date: 20180711
  Serious: Yes (Other)
  Sender: FDA-Public Use
  Company Number: BR-PFIZER INC-2018182424

PATIENT
  Age: 42 Year
  Sex: Male

DRUGS (2)
  1. FRONTAL [Suspect]
     Active Substance: ALPRAZOLAM
     Indication: DEPRESSION
     Dosage: 1 MG, 2X/DAY ( 1MG IN THE MORNING AND 1MG)
     Dates: start: 2004
  2. FRONTAL [Suspect]
     Active Substance: ALPRAZOLAM
     Indication: FEELING OF RELAXATION
     Dosage: 1 MG, 2X/DAY ( 1MG IN THE MORNING AND 1MG)
     Dates: start: 1995

REACTIONS (5)
  - Pain [Not Recovered/Not Resolved]
  - Lower limb fracture [Not Recovered/Not Resolved]
  - Arthritis [Not Recovered/Not Resolved]
  - Fracture pain [Not Recovered/Not Resolved]
  - Product use in unapproved indication [Unknown]

NARRATIVE: CASE EVENT DATE: 1995
